FAERS Safety Report 5533935-7 (Version None)
Quarter: 2007Q4

REPORT INFORMATION
  Report Type: 
  Country: None (occurrence: None)
  Receive Date: 20071129
  Receipt Date: 20071113
  Transmission Date: 20080405
  Serious: Yes (Hospitalization)
  Sender: FDA-Public Use
  Company Number: S07-FRA-05327-01

PATIENT
  Age: 94 Year
  Sex: Female
  Weight: 70 kg

DRUGS (21)
  1. MONUROL [Suspect]
     Dosage: 3 G UNK PO
     Route: 048
     Dates: end: 20070702
  2. IRBESARTAN [Suspect]
     Dosage: 150 MG UNK PO
     Route: 048
  3. PRETERAX [Suspect]
     Dates: end: 20070702
  4. IPERTEN (MANIDIPINE HYDROCHLORIDE) [Suspect]
  5. TEMERIT (NEBIVOLOL) [Suspect]
  6. LASIX [Suspect]
     Dosage: 20 MG UNK
  7. MEDIATENSYL (URAPIDIL) [Suspect]
  8. DISCOTRINE (GLYERCYL TRINITRATE) [Suspect]
  9. PLAVIX [Suspect]
  10. VASTAREL (TRIMETAZIDINE) [Suspect]
     Dosage: 35 MG QD PO
     Route: 048
     Dates: end: 20070702
  11. PANTOPRAZOLE SODIUM [Suspect]
     Dosage: 20 MG UNK PO
     Route: 048
     Dates: end: 20070702
  12. DI-ANTALVIC [Suspect]
     Dates: end: 20070702
  13. LANSOYL (PARAFIN, LIQUID) [Suspect]
     Dates: end: 20070702
  14. VOLTAREN [Suspect]
  15. FENOFIBRATE [Suspect]
  16. DURAGESIC-100 [Suspect]
     Dates: end: 20070702
  17. MOTILYO (DOMPERIDONE) [Suspect]
  18. ACARBOSE [Suspect]
  19. BACTRIM [Suspect]
     Dates: end: 20070702
  20. FLECTOR EP GEL (DICLOFENAC EPOLAMINUM) [Suspect]
  21. DAFALGAN CODEINE [Suspect]

REACTIONS (5)
  - BLOOD CREATININE INCREASED [None]
  - BLOOD POTASSIUM INCREASED [None]
  - BUNDLE BRANCH BLOCK LEFT [None]
  - ELECTROCARDIOGRAM P WAVE ABNORMAL [None]
  - RENAL FAILURE [None]
